FAERS Safety Report 8811521 (Version 1)
Quarter: 2012Q4

REPORT INFORMATION
  Report Type: Spontaneous
  Country: US (occurrence: None)
  Receive Date: 20120926
  Receipt Date: 20120926
  Transmission Date: 20130627
  Serious: Yes (Hospitalization)
  Sender: FDA-Public Use
  Company Number: None

PATIENT
  Age: 12 Year
  Sex: Male
  Weight: 54 kg

DRUGS (2)
  1. HIZENTRA [Suspect]
     Indication: IMMUNODEFICIENCY
     Dosage: 4 grams -20 ml- weekly sq
     Dates: start: 20120831, end: 20120907
  2. HIZENTRA [Suspect]
     Indication: UNSPECIFIED IMMUNITY DEFICIENCY
     Dosage: 4 grams -20 ml- weekly sq
     Dates: start: 20120831, end: 20120907

REACTIONS (7)
  - Headache [None]
  - Confusional state [None]
  - Gait disturbance [None]
  - Vision blurred [None]
  - Hyperhidrosis [None]
  - Pyrexia [None]
  - Fatigue [None]
